FAERS Safety Report 22075715 (Version 11)
Quarter: 2023Q2

REPORT INFORMATION
  Report Type: Spontaneous
  Country: US (occurrence: US)
  Receive Date: 20230308
  Receipt Date: 20230628
  Transmission Date: 20230721
  Serious: No
  Sender: FDA-Public Use
  Company Number: US-ELI_LILLY_AND_COMPANY-US202302010862

PATIENT
  Age: 65 Year
  Sex: Female
  Weight: 68.435 kg

DRUGS (18)
  1. ADCIRCA [Suspect]
     Active Substance: TADALAFIL
     Indication: Pulmonary arterial hypertension
     Dosage: 20 MG, DAILY FOR 7 DAYS
     Route: 048
  2. ADCIRCA [Suspect]
     Active Substance: TADALAFIL
     Dosage: 20 MG, BID
     Route: 048
     Dates: start: 20230216
  3. ADCIRCA [Suspect]
     Active Substance: TADALAFIL
     Dosage: 20 MG, DAILY
     Route: 048
  4. REMODULIN [Suspect]
     Active Substance: TREPROSTINIL
     Indication: Pulmonary arterial hypertension
     Dosage: 2.5 MG/ML, OTHER CONTINUOUS (45 NG/KG/MIN)
     Route: 042
     Dates: start: 20220804
  5. REMODULIN [Suspect]
     Active Substance: TREPROSTINIL
     Dosage: 2.5 MG/ML, OTHER CONTINUOUS (45 NG/KG/MIN)
     Route: 042
     Dates: start: 20220804
  6. REMODULIN [Suspect]
     Active Substance: TREPROSTINIL
     Dosage: 2.5 MG/ML, OTHER CONTINUOUS (45 NG/KG/MIN)
     Route: 042
     Dates: start: 20230530
  7. REMODULIN [Suspect]
     Active Substance: TREPROSTINIL
     Dosage: 45 NG, OTHER (45 NG/KG/MIN CONITNUOUS)
     Route: 042
     Dates: start: 20230530
  8. REMODULIN [Suspect]
     Active Substance: TREPROSTINIL
     Dosage: 45 NG, OTHER (45 NG/KG/MIN CONITNUOUS)
     Route: 042
     Dates: start: 20230530
  9. REMODULIN [Suspect]
     Active Substance: TREPROSTINIL
     Dosage: 45 NG, OTHER (45 NG/KG/MIN CONITNUOUS)
     Route: 042
     Dates: start: 20230530
  10. OPSUMIT [Suspect]
     Active Substance: MACITENTAN
     Indication: Product used for unknown indication
     Dosage: UNK UNK, UNKNOWN
     Route: 065
  11. SILDENAFIL CITRATE [Suspect]
     Active Substance: SILDENAFIL CITRATE
     Indication: Product used for unknown indication
     Dosage: UNK UNK, UNKNOWN
     Route: 065
  12. ORENITRAM [Suspect]
     Active Substance: TREPROSTINIL
     Indication: Pulmonary arterial hypertension
     Dosage: 2.5 MG, DAILY
     Route: 048
  13. ORENITRAM [Suspect]
     Active Substance: TREPROSTINIL
     Dosage: 5 MG, DAILY
     Route: 048
  14. ORENITRAM [Suspect]
     Active Substance: TREPROSTINIL
     Dosage: 1.0 MG, DAILY
     Route: 048
  15. ORENITRAM [Suspect]
     Active Substance: TREPROSTINIL
     Dosage: 0.25 MG, DAILY
     Route: 048
  16. ORENITRAM [Suspect]
     Active Substance: TREPROSTINIL
     Dosage: 0.125 MG, DAILY
     Route: 048
  17. ORENITRAM [Suspect]
     Active Substance: TREPROSTINIL
     Dosage: 8 MG, TID
     Route: 048
     Dates: start: 20230530
  18. AMITRIPTYLINE [Concomitant]
     Active Substance: AMITRIPTYLINE
     Indication: Product used for unknown indication

REACTIONS (25)
  - Poor quality sleep [Unknown]
  - Muscle spasms [Unknown]
  - Vein disorder [Unknown]
  - Bone pain [Recovered/Resolved]
  - Disorientation [Unknown]
  - Muscle atrophy [Unknown]
  - Depression [Unknown]
  - Anxiety [Unknown]
  - COVID-19 [Recovered/Resolved]
  - Decreased appetite [Unknown]
  - Weight decreased [Unknown]
  - Pain in jaw [Unknown]
  - Frequent bowel movements [Unknown]
  - Weight increased [Unknown]
  - Feeling cold [Unknown]
  - Cough [Unknown]
  - Pain in extremity [Unknown]
  - Myalgia [Unknown]
  - Flushing [Unknown]
  - Asthenia [Unknown]
  - Nausea [Unknown]
  - Diarrhoea [Unknown]
  - Headache [Unknown]
  - Hyperhidrosis [Unknown]
  - Infusion site erythema [Unknown]

NARRATIVE: CASE EVENT DATE: 20230216
